FAERS Safety Report 8809574 (Version 2)
Quarter: 2015Q2

REPORT INFORMATION
  Report Type: Report from Study
  Country: US (occurrence: US)
  Receive Date: 20120926
  Receipt Date: 20150403
  Transmission Date: 20150821
  Serious: Yes (Death)
  Sender: FDA-Public Use
  Company Number: US-ROCHE-1128241

PATIENT
  Age: 69 Year
  Sex: Female

DRUGS (28)
  1. DEXAMETHASONE. [Concomitant]
     Active Substance: DEXAMETHASONE
     Route: 042
  2. BENADRYL [Concomitant]
     Active Substance: DIPHENHYDRAMINE HYDROCHLORIDE
     Route: 042
  3. KYTRIL [Concomitant]
     Active Substance: GRANISETRON HYDROCHLORIDE
     Route: 042
  4. TAXOTERE [Concomitant]
     Active Substance: DOCETAXEL
     Route: 065
  5. ALOXI [Concomitant]
     Active Substance: PALONOSETRON HYDROCHLORIDE
     Route: 042
  6. AVASTIN [Suspect]
     Active Substance: BEVACIZUMAB
     Indication: LUNG NEOPLASM MALIGNANT
  7. XELODA [Suspect]
     Active Substance: CAPECITABINE
     Indication: LUNG NEOPLASM MALIGNANT
     Route: 048
  8. DEXAMETHASONE. [Concomitant]
     Active Substance: DEXAMETHASONE
     Route: 042
  9. ZOFRAN [Concomitant]
     Active Substance: ONDANSETRON HYDROCHLORIDE
     Route: 042
  10. GEMZAR [Concomitant]
     Active Substance: GEMCITABINE HYDROCHLORIDE
     Route: 042
  11. ABRAXANE [Concomitant]
     Active Substance: PACLITAXEL
  12. AVASTIN [Suspect]
     Active Substance: BEVACIZUMAB
     Indication: BREAST CANCER FEMALE
     Route: 042
     Dates: start: 20060920
  13. XELODA [Suspect]
     Active Substance: CAPECITABINE
     Route: 048
  14. COMPAZINE [Concomitant]
     Active Substance: PROCHLORPERAZINE MALEATE
     Route: 042
  15. ARANESP [Concomitant]
     Active Substance: DARBEPOETIN ALFA
     Route: 065
  16. PERCOCET [Concomitant]
     Active Substance: ACETAMINOPHEN\OXYCODONE HYDROCHLORIDE
     Dosage: A NIGHT
     Route: 065
  17. TAXOL [Concomitant]
     Active Substance: PACLITAXEL
     Route: 042
  18. OXYCONTIN [Concomitant]
     Active Substance: OXYCODONE HYDROCHLORIDE
     Route: 065
  19. DOCETAXEL. [Concomitant]
     Active Substance: DOCETAXEL
     Route: 042
  20. DOCETAXEL. [Concomitant]
     Active Substance: DOCETAXEL
     Route: 042
  21. DOXORUBICIN [Concomitant]
     Active Substance: DOXORUBICIN
     Route: 042
  22. GEMZAR [Concomitant]
     Active Substance: GEMCITABINE HYDROCHLORIDE
     Route: 042
  23. DEXAMETHASONE. [Concomitant]
     Active Substance: DEXAMETHASONE
     Route: 042
  24. CIMETIDINE [Concomitant]
     Active Substance: CIMETIDINE
     Route: 042
  25. LASIX [Concomitant]
     Active Substance: FUROSEMIDE
     Route: 065
  26. TYLENOL [Concomitant]
     Active Substance: ACETAMINOPHEN
  27. XELODA [Suspect]
     Active Substance: CAPECITABINE
     Indication: BREAST CANCER FEMALE
     Route: 048
  28. KEFLEX [Concomitant]
     Active Substance: CEPHALEXIN

REACTIONS (22)
  - Oedema peripheral [Unknown]
  - Weight decreased [Unknown]
  - Asthenia [Unknown]
  - Constipation [Unknown]
  - Pruritus [Unknown]
  - Pain in extremity [Unknown]
  - Death [Fatal]
  - Therapeutic response decreased [Unknown]
  - Skin disorder [Unknown]
  - Fatigue [Unknown]
  - Alopecia [Unknown]
  - Rash maculo-papular [Unknown]
  - Vomiting [Unknown]
  - Chest discomfort [Unknown]
  - Erythema [Unknown]
  - Skin tightness [Unknown]
  - Skin odour abnormal [Unknown]
  - Feeling abnormal [Unknown]
  - Stomatitis [Unknown]
  - Disease progression [Unknown]
  - Nausea [Unknown]
  - Abdominal discomfort [Unknown]

NARRATIVE: CASE EVENT DATE: 20070420
